FAERS Safety Report 13359910 (Version 1)
Quarter: 2017Q1

REPORT INFORMATION
  Report Type: Spontaneous
  Country: TR (occurrence: TR)
  Receive Date: 20170322
  Receipt Date: 20170322
  Transmission Date: 20170429
  Serious: Yes (Other)
  Sender: FDA-Public Use
  Company Number: TR-JNJFOC-20170320669

PATIENT

DRUGS (3)
  1. IBRUTINIB [Suspect]
     Active Substance: IBRUTINIB
     Indication: LYMPHOCYTIC LYMPHOMA
     Dosage: BETWEEN OCTOBER 2015 AND JANUARY 2017 FOR CLL OR SLL OR MCL
     Route: 048
     Dates: end: 201701
  2. IBRUTINIB [Suspect]
     Active Substance: IBRUTINIB
     Indication: MANTLE CELL LYMPHOMA
     Dosage: BETWEEN OCTOBER 2015 AND JANUARY 2017 FOR CLL OR SLL OR MCL
     Route: 048
     Dates: end: 201701
  3. IBRUTINIB [Suspect]
     Active Substance: IBRUTINIB
     Indication: CHRONIC LYMPHOCYTIC LEUKAEMIA
     Dosage: BETWEEN OCTOBER 2015 AND JANUARY 2017 FOR CLL OR SLL OR MCL
     Route: 048
     Dates: end: 201701

REACTIONS (1)
  - Subarachnoid haemorrhage [Unknown]
